FAERS Safety Report 5494590-8 (Version None)
Quarter: 2007Q4

REPORT INFORMATION
  Report Type: 
  Country: None (occurrence: None)
  Receive Date: 20071024
  Receipt Date: 20071015
  Transmission Date: 20080405
  Serious: Yes (Death, Hospitalization, Other)
  Sender: FDA-Public Use
  Company Number: US-ELI_LILLY_AND_COMPANY-US200710003657

PATIENT
  Sex: Female

DRUGS (3)
  1. FORTEO [Suspect]
     Dosage: UNK, UNK
     Dates: start: 20060101, end: 20061201
  2. TOPROL-XL [Concomitant]
     Indication: HEART RATE IRREGULAR
  3. NEXIUM [Concomitant]
     Indication: DYSPEPSIA

REACTIONS (6)
  - ASTHENIA [None]
  - CARDIAC FAILURE [None]
  - DECREASED APPETITE [None]
  - MEMORY IMPAIRMENT [None]
  - MOBILITY DECREASED [None]
  - TRANSIENT ISCHAEMIC ATTACK [None]
